FAERS Safety Report 9665409 (Version 3)
Quarter: 2014Q2

REPORT INFORMATION
  Report Type: Spontaneous
  Country: US (occurrence: US)
  Receive Date: 20131104
  Receipt Date: 20140403
  Transmission Date: 20141212
  Serious: Yes (Death, Hospitalization, Other)
  Sender: FDA-Public Use
  Company Number: US-CELGENEUS-163-21880-13105709

PATIENT
  Age: 77 Year
  Sex: Male

DRUGS (17)
  1. REVLIMID [Suspect]
     Indication: MANTLE CELL LYMPHOMA
     Dosage: 25 MILLIGRAM
     Route: 048
     Dates: start: 20071208, end: 20080722
  2. REVLIMID [Suspect]
     Dosage: 10 MILLIGRAM
     Route: 048
     Dates: start: 20121010, end: 20121113
  3. RITUXAN [Concomitant]
     Indication: MANTLE CELL LYMPHOMA
     Route: 065
     Dates: start: 2003, end: 200501
  4. RITUXAN [Concomitant]
     Route: 065
     Dates: start: 200610, end: 200711
  5. CLADRIBINE [Concomitant]
     Indication: MANTLE CELL LYMPHOMA
     Route: 065
  6. EVEROLIMUS [Concomitant]
     Indication: MANTLE CELL LYMPHOMA
     Route: 065
  7. BENDAMUSTINE [Concomitant]
     Indication: MANTLE CELL LYMPHOMA
     Route: 065
  8. DACOGEN [Concomitant]
     Indication: MYELODYSPLASTIC SYNDROME
     Route: 065
     Dates: start: 2012
  9. PEGFILGRASTIM [Concomitant]
     Indication: NEUTROPENIA
     Route: 058
     Dates: start: 20090822, end: 20090919
  10. DECITABINE [Concomitant]
     Indication: PRODUCT USED FOR UNKNOWN INDICATION
     Route: 065
  11. DECITABINE [Concomitant]
     Dosage: 20 MILLIGRAM/SQ. METER
     Route: 041
     Dates: start: 20121111
  12. ENALAPRIL [Concomitant]
     Indication: PRODUCT USED FOR UNKNOWN INDICATION
     Dosage: 10 MILLIGRAM
     Route: 048
  13. CENTRUM SILVER [Concomitant]
     Indication: PRODUCT USED FOR UNKNOWN INDICATION
     Dosage: .5 TABLET
     Route: 048
  14. SELENIUM [Concomitant]
     Indication: PRODUCT USED FOR UNKNOWN INDICATION
     Route: 048
  15. ZINC [Concomitant]
     Indication: PRODUCT USED FOR UNKNOWN INDICATION
     Route: 048
  16. SAW PALMETTO [Concomitant]
     Indication: PRODUCT USED FOR UNKNOWN INDICATION
     Route: 048
  17. LYRICA [Concomitant]
     Indication: PRODUCT USED FOR UNKNOWN INDICATION
     Route: 065

REACTIONS (3)
  - Myelodysplastic syndrome [Fatal]
  - Pseudomonal bacteraemia [Recovered/Resolved]
  - Mantle cell lymphoma [Unknown]
